FAERS Safety Report 7367079-9 (Version None)
Quarter: 2011Q1

REPORT INFORMATION
  Report Type: 
  Country: None (occurrence: None)
  Receive Date: 20110322
  Receipt Date: 20100823
  Transmission Date: 20110831
  Serious: No
  Sender: FDA-Public Use
  Company Number: US-TYCO HEALTHCARE/MALLINCKRODT-T201001878

PATIENT
  Sex: Female

DRUGS (4)
  1. WELLBUTRIN [Concomitant]
     Indication: DEPRESSION
     Dosage: 75 MG QD
     Route: 048
  2. METHADONE [Suspect]
     Indication: PAIN
     Dosage: 2 TABLETS TID
     Route: 048
     Dates: start: 20100818
  3. LEXAPRO [Concomitant]
     Indication: ANXIETY
     Dosage: 20 MG, QD
     Route: 048
  4. PROVIGIL [Concomitant]
     Indication: SOMNOLENCE
     Dosage: 400 MG, UNK
     Route: 048

REACTIONS (2)
  - NAUSEA [None]
  - JOINT SWELLING [None]
